FAERS Safety Report 8568273 (Version 9)
Quarter: 2015Q4

REPORT INFORMATION
  Report Type: Report from Study
  Country: US (occurrence: US)
  Receive Date: 20120518
  Receipt Date: 20151210
  Transmission Date: 20160305
  Serious: No
  Sender: FDA-Public Use
  Company Number: PHEH2012US009723

PATIENT
  Sex: Female

DRUGS (2)
  1. TASIGNA [Suspect]
     Active Substance: NILOTINIB
     Indication: CHRONIC MYELOID LEUKAEMIA
     Dosage: 300 MG, BID
     Route: 048
     Dates: start: 20120327
  2. TASIGNA [Suspect]
     Active Substance: NILOTINIB
     Dosage: 150 MG, BID
     Route: 048

REACTIONS (12)
  - Ear infection [Unknown]
  - Skin irritation [Unknown]
  - Rash [Unknown]
  - Rhinorrhoea [Unknown]
  - Pruritus [Unknown]
  - Gastrooesophageal reflux disease [Unknown]
  - Product blister packaging issue [Unknown]
  - Dry skin [Unknown]
  - Musculoskeletal pain [Unknown]
  - Herpes zoster [Unknown]
  - Dry eye [Unknown]
  - Lacrimation increased [Unknown]
